FAERS Safety Report 7732745-X (Version None)
Quarter: 2011Q3

REPORT INFORMATION
  Report Type: 
  Country: None (occurrence: None)
  Receive Date: 20110829
  Receipt Date: 20110823
  Transmission Date: 20111222
  Serious: Yes (Hospitalization)
  Sender: FDA-Public Use
  Company Number: 2011029610

PATIENT
  Age: 48 Year
  Sex: Male
  Weight: 89.8122 kg

DRUGS (12)
  1. ALBUTEROL [Concomitant]
  2. HIZENTRA [Suspect]
     Indication: IMMUNODEFICIENCY
     Dosage: (10 G 1X/WEEK, 2 GM 10 ML VIAL; 50 ML IN 2-4 SITES OVER 2 HOURS SUBCUTANEOUS), (4 GM 20 ML VIAL SC
     Route: 058
  3. ACYCLOVIR [Concomitant]
  4. VITAMIN B12 [Concomitant]
  5. AMOXICILLIN [Concomitant]
  6. AMBIEN (ZLOPIDEM TARTRATE) [Concomitant]
  7. HIZENTRA [Suspect]
  8. LEVAQUIN [Concomitant]
  9. BIAXIN [Concomitant]
  10. IBUPROFEN [Concomitant]
  11. LISINOPRIL [Concomitant]
  12. HYDROCHLOROTHIAZIDE [Concomitant]

REACTIONS (6)
  - FATIGUE [None]
  - VISION BLURRED [None]
  - MUSCULAR WEAKNESS [None]
  - DISTURBANCE IN ATTENTION [None]
  - WEIGHT DECREASED [None]
  - SOMNOLENCE [None]
